FAERS Safety Report 5247672-X (Version None)
Quarter: 2007Q1

REPORT INFORMATION
  Report Type: 
  Country: None (occurrence: None)
  Receive Date: 20070220
  Receipt Date: 20070207
  Transmission Date: 20070707
  Serious: Yes (Other)
  Sender: FDA-Public Use
  Company Number: 232654

PATIENT
  Age: 14 Year
  Sex: Female

DRUGS (3)
  1. NUTROPIN AQ(SOMATROPIN)UNKNOWN [Suspect]
     Indication: BODY HEIGHT BELOW NORMAL
     Dosage: 1.8 MG, QD, SUBCUTANEOUS
     Route: 058
     Dates: start: 20030201, end: 20060201
  2. CLINDAMYCIN PHOSPHATE [Concomitant]
  3. BENZOYL PEROXIDE GEL 5% (BENZOYL PEROXIDE) [Concomitant]

REACTIONS (2)
  - SUPRAVENTRICULAR EXTRASYSTOLES [None]
  - VENTRICULAR EXTRASYSTOLES [None]
